FAERS Safety Report 26054313 (Version 1)
Quarter: 2025Q4

REPORT INFORMATION
  Report Type: Spontaneous
  Country: US (occurrence: US)
  Receive Date: 20251117
  Receipt Date: 20251117
  Transmission Date: 20260118
  Serious: No
  Sender: PFIZER
  Company Number: US-PFIZER INC-202500180884

PATIENT
  Age: 67 Year
  Sex: Female
  Weight: 79.83 kg

DRUGS (1)
  1. BOSULIF [Suspect]
     Active Substance: BOSUTINIB MONOHYDRATE
     Indication: Chronic myeloid leukaemia
     Dosage: 400 MG, DAILY (TAKE ONE TABLET BY MOUTH DAILY WITH FOOD)
     Route: 048

REACTIONS (2)
  - Wrong strength [Unknown]
  - Rash [Unknown]
